FAERS Safety Report 12248809 (Version 16)
Quarter: 2021Q1

REPORT INFORMATION
  Report Type: Spontaneous
  Country: US (occurrence: US)
  Receive Date: 20160408
  Receipt Date: 20210224
  Transmission Date: 20210419
  Serious: Yes (Hospitalization, Other)
  Sender: FDA-Public Use
  Company Number: US-PFIZER INC-2016194469

PATIENT
  Age: 68 Year
  Sex: Female
  Weight: 104 kg

DRUGS (40)
  1. LYRICA [Suspect]
     Active Substance: PREGABALIN
     Indication: DIABETIC NEUROPATHY
     Dosage: 100 MG, 3X/DAY
     Route: 048
  2. LYRICA [Suspect]
     Active Substance: PREGABALIN
     Dosage: 100 MG, 3X/DAY
     Route: 048
  3. LIDOCAINE. [Concomitant]
     Active Substance: LIDOCAINE
     Dosage: 1 DF, DAILY (MAY WEAR UP TO 12 HOURS)
     Route: 062
  4. SUMATRIPTAN. [Concomitant]
     Active Substance: SUMATRIPTAN
     Dosage: 100 MG, 1X/DAY(MAY RPT Q 2HRS X 1, NOT TO EXCEED 200MG QD)
     Route: 048
  5. TRAVATAN Z [Concomitant]
     Active Substance: TRAVOPROST
     Indication: GLAUCOMA
  6. ADVAIR DISKUS [Concomitant]
     Active Substance: FLUTICASONE PROPIONATE\SALMETEROL XINAFOATE
     Indication: ASTHMA
     Dosage: 1 PUFF EVERY 12 HRS) (SALMETEROL XINAFOATE 50UG, FLUTICASONE PROPIONATE 250UG)
     Route: 055
  7. ASPIRIN 81 [Concomitant]
     Active Substance: ASPIRIN
     Indication: THROMBOSIS PROPHYLAXIS
     Dosage: 81 MG, 1X/DAY [EITHER WITH OR WITHOUT FOOD]
  8. BUSPIRONE [Concomitant]
     Active Substance: BUSPIRONE HYDROCHLORIDE
     Dosage: 7.5 MG, 2X/DAY
     Route: 048
  9. HUMALOG KWIKPEN [Concomitant]
     Active Substance: INSULIN LISPRO
     Indication: DIABETES MELLITUS
     Dosage: UNK, 3X/DAY (DOSE: 6/4/6; M/N/E; BEFORE MEALS); 6UNITS BREAKFAST, 4 UNITS LUNCH 6 UNITS DINNER
  10. IRON [Concomitant]
     Active Substance: IRON
     Indication: IRON DEFICIENCY
     Dosage: 65 MG, 1X/DAY [WITH MEALS]
  11. PROZAC [Concomitant]
     Active Substance: FLUOXETINE HYDROCHLORIDE
     Indication: DEPRESSION
     Dosage: 60 MG, 1X/DAY [WITH MEALS]
  12. PROAIR HFA [Concomitant]
     Active Substance: ALBUTEROL SULFATE
     Indication: ASTHMA
     Dosage: 90 MCG, 2 PUFF 3X DAILY
     Route: 055
  13. TRAVATAN Z [Concomitant]
     Active Substance: TRAVOPROST
     Indication: CATARACT
     Dosage: 2 GTT, 1X/DAY EVERY NIGHT [1 DROP IN EACH EYE; 0.004%]
     Route: 047
  14. CELEBREX [Concomitant]
     Active Substance: CELECOXIB
     Indication: INFLAMMATION
     Dosage: 100 MG, 1X/DAY [WITH MEALS]
  15. MACROBID [Concomitant]
     Active Substance: NITROFURANTOIN\NITROFURANTOIN MONOHYDRATE
     Dosage: 100 MG, 1X/DAY
     Route: 048
  16. TOUJEO SOLO [Concomitant]
     Indication: DIABETES MELLITUS
     Dosage: 30 IU, 1X/DAY (BEFORE BED; WITHOUT FOOD)
  17. TOUJEO SOLO [Concomitant]
     Dosage: 20 IU, 1X/DAY (AT BEDTIME)
     Route: 058
  18. ZESTRIL [Concomitant]
     Active Substance: LISINOPRIL
     Dosage: 5 MG, 1X/DAY
     Route: 048
  19. LYRICA [Suspect]
     Active Substance: PREGABALIN
     Indication: PAIN
     Dosage: 100 MG, 3X/DAY
     Route: 048
  20. CELEBREX [Concomitant]
     Active Substance: CELECOXIB
     Dosage: 200 MG, 1X/DAY
     Route: 048
  21. DILAUDID [Concomitant]
     Active Substance: HYDROMORPHONE HYDROCHLORIDE
     Indication: KNEE OPERATION
     Dosage: 2MG, 1?2 EVERY 4?6 HRS AS NEEDED
  22. PRILOSEC [Concomitant]
     Active Substance: OMEPRAZOLE MAGNESIUM
     Indication: DYSPEPSIA
     Dosage: 20 MG, 1X/DAY [WITHOUT MEAL]
  23. VOLTAREN [Concomitant]
     Active Substance: DICLOFENAC SODIUM
     Dosage: APPLY (2G) BY TOPICAL ROUTE 4 TIMES EVERY DAY
     Route: 061
  24. LYRICA [Suspect]
     Active Substance: PREGABALIN
     Indication: NEUROPATHY PERIPHERAL
     Dosage: 50 MG, 3X/DAY (IN THE MORNING, LUNCH AND BEDTIME; WITH FOOD)
     Route: 048
     Dates: start: 2015
  25. DILAUDID [Concomitant]
     Active Substance: HYDROMORPHONE HYDROCHLORIDE
     Indication: PAIN
  26. FLUOXETINE [Concomitant]
     Active Substance: FLUOXETINE HYDROCHLORIDE
     Dosage: 60 MG, 1X/DAY (IN THE MORNING)
     Route: 048
  27. AMBIEN [Concomitant]
     Active Substance: ZOLPIDEM TARTRATE
     Dosage: 10 MG, 1X/DAY (AT BEDTIME)
     Route: 048
  28. ATORVASTATIN CALCIUM. [Concomitant]
     Active Substance: ATORVASTATIN CALCIUM
     Indication: BLOOD CHOLESTEROL INCREASED
     Dosage: 40 MG, 1X/DAY [WITH MEALS]
     Route: 048
  29. GABAPENTIN. [Concomitant]
     Active Substance: GABAPENTIN
     Indication: PAIN
     Dosage: 300 MG, 3X/DAY
     Route: 048
  30. GABAPENTIN. [Concomitant]
     Active Substance: GABAPENTIN
     Dosage: UNK (DOUBLING UP ON GABAPENTIN TO ALLEVIATE THE PAIN)
  31. GLIPIZIDE. [Concomitant]
     Active Substance: GLIPIZIDE
     Indication: DIABETES MELLITUS
     Dosage: 5 MG, 1X/DAY (AT BREAKFAST)
  32. LISINOPRIL. [Concomitant]
     Active Substance: LISINOPRIL
     Indication: HYPERTENSION
     Dosage: 5 MG, 1X/DAY [WITH MEALS]
  33. PROAIR HFA [Concomitant]
     Active Substance: ALBUTEROL SULFATE
     Dosage: 180 UG, AS NEEDED (90 MCG/ACTUATION; EVERY 4 ? 6 HOURS AS NEEDED)
     Route: 055
  34. SILVADENE [Concomitant]
     Active Substance: SILVER SULFADIAZINE
     Indication: THERMAL BURN
     Dosage: UNK, 2X/DAY (1/16 INCH (1.5 MM) THICK LAYER TO ENTIRE BURN AREA)
     Route: 061
  35. ZYRTEC [Concomitant]
     Active Substance: CETIRIZINE HYDROCHLORIDE
     Indication: ECZEMA
     Dosage: 10 MG, 1X/DAY (1X NIGHTLY) [WITHOUT MEAL]
  36. CARISOPRODOL. [Concomitant]
     Active Substance: CARISOPRODOL
     Indication: MUSCLE SPASMS
     Dosage: 350 MG, 1X/DAY (NIGHTLY; WITHOUT MEAL)
  37. DILAUDID [Concomitant]
     Active Substance: HYDROMORPHONE HYDROCHLORIDE
     Indication: NEUROPATHY PERIPHERAL
  38. NITROFURANTOIN MONO [Concomitant]
     Active Substance: NITROFURANTOIN
     Indication: CYSTITIS
     Dosage: 100 MG, 1X/DAY [WITH MEALS]
  39. HUMULIN NOS [Concomitant]
     Active Substance: INSULIN HUMAN
     Dosage: 32 GAUGE X 5/32^, DAILY
  40. SOMA [Concomitant]
     Active Substance: CARISOPRODOL
     Dosage: 350 MG, 1X/DAY (AT BEDTIME)
     Route: 048

REACTIONS (12)
  - Arthritis infective [Not Recovered/Not Resolved]
  - Gingival disorder [Unknown]
  - Fall [Recovering/Resolving]
  - Toothache [Unknown]
  - Inguinal hernia [Unknown]
  - Dysarthria [Unknown]
  - Wound [Recovering/Resolving]
  - Drug ineffective [Unknown]
  - Breakthrough pain [Unknown]
  - Body height decreased [Unknown]
  - Pain in extremity [Not Recovered/Not Resolved]
  - Headache [Unknown]

NARRATIVE: CASE EVENT DATE: 201508
